FAERS Safety Report 17269994 (Version 1)
Quarter: 2020Q1

REPORT INFORMATION
  Report Type: Spontaneous
  Country: US (occurrence: US)
  Receive Date: 20200114
  Receipt Date: 20200114
  Transmission Date: 20200409
  Serious: No
  Sender: FDA-Public Use
  Company Number: US-PFIZER INC-2020016592

PATIENT
  Age: 79 Year
  Sex: Female
  Weight: 59 kg

DRUGS (10)
  1. XGEVA [Concomitant]
     Active Substance: DENOSUMAB
     Dosage: UNK, (120 MG/1.7 VIAL)
  2. ATORVASTATIN CALCIUM. [Concomitant]
     Active Substance: ATORVASTATIN CALCIUM
     Dosage: 10 MG, UNK
  3. CALCIUM [Concomitant]
     Active Substance: CALCIUM
     Dosage: 500 MG, UNK, (CALCIUM 500 MG-100 TAB CHEW)
  4. OMEPRAZOLE AND SODIUM BICARBONATE [Concomitant]
     Active Substance: OMEPRAZOLE\SODIUM BICARBONATE
     Dosage: UNK
  5. IRON [Concomitant]
     Active Substance: IRON
     Dosage: 159 MG, UNK,(IRON 159 (45) MG TABLET ER)
  6. LETROZOLE. [Concomitant]
     Active Substance: LETROZOLE
     Dosage: 2.5 MG, UNK
  7. ASPIRIN [ACETYLSALICYLIC ACID] [Concomitant]
     Active Substance: ASPIRIN
     Dosage: UNK
  8. AMLODIPINE BESYLATE. [Concomitant]
     Active Substance: AMLODIPINE BESYLATE
     Dosage: UNK
  9. IBRANCE [Suspect]
     Active Substance: PALBOCICLIB
     Indication: BREAST CANCER FEMALE
     Dosage: 125 MG, CYCLIC, (DAILY FOR 21 OUT OF 28 DAYS)
     Route: 048
     Dates: start: 2018
  10. BREO ELLIPTA [Concomitant]
     Active Substance: FLUTICASONE FUROATE\VILANTEROL TRIFENATATE
     Dosage: UNK (100-25 MCG BLST W/DEV)

REACTIONS (2)
  - Headache [Unknown]
  - Pruritus [Recovered/Resolved]
